FAERS Safety Report 22190493 (Version 2)
Quarter: 2023Q2

REPORT INFORMATION
  Report Type: Spontaneous
  Country: CH (occurrence: None)
  Receive Date: 20230410
  Receipt Date: 20230502
  Transmission Date: 20230721
  Serious: Yes (Other)
  Sender: FDA-Public Use
  Company Number: CH-ROCHE-3325766

PATIENT
  Age: 57 Year
  Sex: Female

DRUGS (3)
  1. MABTHERA [Suspect]
     Active Substance: RITUXIMAB
     Indication: Chronic lymphocytic leukaemia
     Dosage: 6 CYCLES
     Route: 065
     Dates: start: 20160530, end: 20161025
  2. RIBOMUSTIN [Suspect]
     Active Substance: BENDAMUSTINE HYDROCHLORIDE
     Indication: Chronic lymphocytic leukaemia
     Dosage: 6 CYCLES
     Route: 065
     Dates: start: 20160530, end: 20161025
  3. IMBRUVICA [Suspect]
     Active Substance: IBRUTINIB
     Indication: Chronic lymphocytic leukaemia
     Route: 065

REACTIONS (3)
  - Chronic lymphocytic leukaemia recurrent [Unknown]
  - Chronic lymphocytic leukaemia [Unknown]
  - Skin reaction [Unknown]
